FAERS Safety Report 19503898 (Version 1)
Quarter: 2021Q3

REPORT INFORMATION
  Report Type: Spontaneous
  Country: CA (occurrence: CA)
  Receive Date: 20210707
  Receipt Date: 20210707
  Transmission Date: 20211014
  Serious: Yes (Hospitalization, Other)
  Sender: FDA-Public Use
  Company Number: CA-BAYER-2021-166306

PATIENT
  Age: 16 Year
  Sex: Female
  Weight: 52 kg

DRUGS (5)
  1. KYLEENA [Suspect]
     Active Substance: LEVONORGESTREL
     Indication: CONTRACEPTION
     Dosage: 17.5 ?G PER DAY CONTINUOUSLY
     Route: 015
  2. CICLESONIDE [Concomitant]
     Active Substance: CICLESONIDE
  3. QUETIAPINE. [Concomitant]
     Active Substance: QUETIAPINE
  4. CITALOPRAM [Concomitant]
     Active Substance: CITALOPRAM HYDROBROMIDE
  5. MACROGOL [Concomitant]
     Active Substance: POLYETHYLENE GLYCOLS

REACTIONS (4)
  - Chlamydia test positive [Recovered/Resolved]
  - Pelvic inflammatory disease [Recovered/Resolved]
  - Proteus test positive [Recovered/Resolved]
  - Abdominal pain lower [Recovered/Resolved]
